FAERS Safety Report 5331669-5 (Version None)
Quarter: 2007Q2

REPORT INFORMATION
  Report Type: 
  Country: None (occurrence: None)
  Receive Date: 20070516
  Receipt Date: 20070511
  Transmission Date: 20071010
  Serious: Yes (Death, Hospitalization)
  Sender: FDA-Public Use
  Company Number: 2007SP007928

PATIENT
  Age: 72 Year
  Sex: Male
  Weight: 116.8 kg

DRUGS (7)
  1. TEMODAR [Suspect]
     Indication: GLIOBLASTOMA MULTIFORME
     Dosage: 170 MG; QD; PO
     Route: 048
     Dates: start: 20070228, end: 20070410
  2. HUMALOG [Concomitant]
  3. LASIX [Concomitant]
  4. ZOCOR [Concomitant]
  5. COZAAR [Concomitant]
  6. GLUCOPHAGE [Concomitant]
  7. ADVIL [Concomitant]

REACTIONS (12)
  - ASTHENIA [None]
  - CEREBRAL HAEMORRHAGE [None]
  - DIARRHOEA [None]
  - DYSPNOEA [None]
  - LUNG INFILTRATION [None]
  - MELAENA [None]
  - MUSCULOSKELETAL PAIN [None]
  - NEUTROPHIL COUNT DECREASED [None]
  - OEDEMA PERIPHERAL [None]
  - PLATELET COUNT DECREASED [None]
  - PNEUMONITIS [None]
  - WHITE BLOOD CELL COUNT DECREASED [None]
